FAERS Safety Report 12234366 (Version 2)
Quarter: 2016Q2

REPORT INFORMATION
  Report Type: Spontaneous
  Country: US (occurrence: US)
  Receive Date: 20160404
  Receipt Date: 20160415
  Transmission Date: 20160815
  Serious: No
  Sender: FDA-Public Use
  Company Number: US-BAYER-2016-063332

PATIENT
  Age: 16 Year
  Sex: Male

DRUGS (4)
  1. DAPSONE. [Suspect]
     Active Substance: DAPSONE
     Indication: ACNE
     Dosage: UNK
     Dates: start: 201510
  2. DAPSONE. [Suspect]
     Active Substance: DAPSONE
     Indication: ROSACEA
  3. FINACEA [Suspect]
     Active Substance: AZELAIC ACID
     Indication: ACNE
  4. FINACEA [Suspect]
     Active Substance: AZELAIC ACID
     Indication: ROSACEA
     Dosage: UNK
     Dates: start: 201510

REACTIONS (1)
  - Application site discolouration [Not Recovered/Not Resolved]
